FAERS Safety Report 7427060-8 (Version None)
Quarter: 2011Q2

REPORT INFORMATION
  Report Type: 
  Country: None (occurrence: None)
  Receive Date: 20110420
  Receipt Date: 20110411
  Transmission Date: 20111010
  Serious: Yes (Hospitalization)
  Sender: FDA-Public Use
  Company Number: PHHY2011US31439

PATIENT
  Sex: Male

DRUGS (10)
  1. EXJADE [Suspect]
     Indication: IRON METABOLISM DISORDER
     Route: 048
  2. ATENOLOL [Concomitant]
  3. EXJADE [Suspect]
     Indication: MYELODYSPLASTIC SYNDROME
  4. XANAX [Concomitant]
  5. SELENIUM [Concomitant]
  6. MULTIVITAMINS AND IRON [Concomitant]
  7. ZOLOFT [Concomitant]
  8. ASCORBIC ACID [Concomitant]
  9. LOVAZA [Concomitant]
  10. FOLIC ACID [Concomitant]

REACTIONS (1)
  - LEUKAEMIA [None]
